FAERS Safety Report 8854370 (Version 1)
Quarter: 2012Q4

REPORT INFORMATION
  Report Type: Report from Study
  Country: JP (occurrence: JP)
  Receive Date: 20121023
  Receipt Date: 20121023
  Transmission Date: 20130627
  Serious: Yes (Death, Other)
  Sender: FDA-Public Use
  Company Number: JP-OTSUKA-JP-2012-14983

PATIENT
  Age: 81 Year
  Sex: Female
  Weight: 77 kg

DRUGS (8)
  1. SAMSCA [Suspect]
     Indication: FLUID RETENTION
     Dosage: 7.5 Mg milligram(s), qam
     Route: 048
     Dates: start: 20120115, end: 20120119
  2. PREMINENT [Concomitant]
     Indication: RIGHT VENTRICULAR FAILURE
     Dosage: 1 DF dosage form, daily dose
     Route: 048
     Dates: start: 20120101, end: 20120119
  3. DIART [Concomitant]
     Indication: RIGHT VENTRICULAR FAILURE
     Dosage: 30 Mg milligram(s), daily dose
     Route: 048
     Dates: start: 20120105, end: 20120111
  4. DIART [Concomitant]
     Dosage: 15 Mg milligram(s), daily dose
     Route: 048
     Dates: start: 20120112, end: 20120119
  5. ALDACTONE A [Concomitant]
     Indication: RIGHT VENTRICULAR FAILURE
     Dosage: 25 Mg milligram(s), daily dose
     Route: 048
     Dates: start: 20120105, end: 20120119
  6. CRAVIT [Concomitant]
     Dosage: 250 Mg milligram(s), daily dose
     Route: 048
     Dates: start: 20120114, end: 20120119
  7. MYSLEE [Concomitant]
     Dosage: 5 Mg milligram(s), daily dose
     Route: 048
     Dates: start: 20120116, end: 20120118
  8. HIKARILEVAN [Concomitant]
     Dosage: 500 ml millilitre(s), daily dose
     Route: 042
     Dates: start: 20120117, end: 20120209

REACTIONS (2)
  - Hepatic cirrhosis [Fatal]
  - Blood urea increased [Recovered/Resolved]
